FAERS Safety Report 5105565-2 (Version None)
Quarter: 2006Q3

REPORT INFORMATION
  Report Type: 
  Country: None (occurrence: None)
  Receive Date: 20060915
  Receipt Date: 20031001
  Transmission Date: 20061208
  Serious: Yes (Hospitalization)
  Sender: FDA-Public Use
  Company Number: US-ROCHE-348315

PATIENT
  Age: 52 Year
  Sex: Female

DRUGS (5)
  1. PEGASYS [Suspect]
     Route: 058
     Dates: start: 20030515, end: 20031215
  2. PEGASYS [Suspect]
     Route: 058
     Dates: start: 20040501, end: 20050501
  3. RIBAVIRIN [Suspect]
     Route: 048
     Dates: start: 20030515, end: 20031215
  4. RIBAVIRIN [Suspect]
     Route: 048
     Dates: start: 20040501, end: 20050501
  5. LUNESTA [Concomitant]
     Indication: SOMNOLENCE

REACTIONS (19)
  - ABDOMINAL PAIN [None]
  - ANAEMIA [None]
  - AORTIC ANEURYSM [None]
  - ARTHRALGIA [None]
  - ARTHRITIS [None]
  - BODY TEMPERATURE INCREASED [None]
  - CARDIAC FLUTTER [None]
  - DEPRESSION [None]
  - DIABETES MELLITUS INSULIN-DEPENDENT [None]
  - DIABETIC KETOACIDOSIS [None]
  - DYSPNOEA [None]
  - HAEMOCHROMATOSIS [None]
  - HEART RATE INCREASED [None]
  - HYPOTHYROIDISM [None]
  - INFLUENZA LIKE ILLNESS [None]
  - MEMORY IMPAIRMENT [None]
  - NEUROPATHY [None]
  - NEUTROPENIA [None]
  - SERUM FERRITIN INCREASED [None]
